FAERS Safety Report 6289249-3 (Version None)
Quarter: 2009Q3

REPORT INFORMATION
  Report Type: 
  Country: None (occurrence: None)
  Receive Date: 20090729
  Receipt Date: 20090716
  Transmission Date: 20100115
  Serious: Yes (Hospitalization)
  Sender: FDA-Public Use
  Company Number: TW-TYCO HEALTHCARE/MALLINCKRODT-T200901380

PATIENT
  Age: 33 Year
  Sex: Male

DRUGS (2)
  1. METHADOSE [Suspect]
     Indication: DRUG DEPENDENCE
     Dosage: 150 MG
  2. HEROIN [Suspect]
     Route: 042

REACTIONS (3)
  - DRUG TOXICITY [None]
  - ISCHAEMIC STROKE [None]
  - RHABDOMYOLYSIS [None]
